FAERS Safety Report 9051365 (Version 3)
Quarter: 2013Q2

REPORT INFORMATION
  Report Type: Spontaneous
  Country: US (occurrence: US)
  Receive Date: 20130206
  Receipt Date: 20130528
  Transmission Date: 20140414
  Serious: Yes (Hospitalization)
  Sender: FDA-Public Use
  Company Number: US-BAYER-2013-014186

PATIENT
  Age: 22 Year
  Sex: Female
  Weight: 54.42 kg

DRUGS (9)
  1. YAZ [Suspect]
     Dosage: UNK
     Dates: start: 200810, end: 201108
  2. OXYCODONE [Concomitant]
  3. COLACE [Concomitant]
  4. FERROUS SULFATE [Concomitant]
  5. AZITHROMYCIN [Concomitant]
  6. IBUPROFEN [Concomitant]
  7. MOTRIN [Concomitant]
     Dosage: UNK
     Dates: start: 201003
  8. MOTRIN [Concomitant]
     Dosage: UNK
     Dates: start: 201105
  9. ANTIBIOTICS [Concomitant]
     Dosage: UNK
     Dates: start: 201003, end: 201005

REACTIONS (3)
  - Pulmonary embolism [None]
  - Injury [None]
  - Pain [None]
